FAERS Safety Report 17045519 (Version 1)
Quarter: 2019Q4

REPORT INFORMATION
  Report Type: Other
  Country: US (occurrence: US)
  Receive Date: 20191118
  Receipt Date: 20191118
  Transmission Date: 20200122
  Serious: No
  Sender: FDA-Public Use
  Company Number: US-LEADIANT BIOSCIENCES INC-2019STPI000287

PATIENT

DRUGS (12)
  1. AMLODIPINE [Concomitant]
     Active Substance: AMLODIPINE BESYLATE
  2. PROCYSBI [Concomitant]
     Active Substance: CYSTEAMINE BITARTRATE
  3. ONDANSETRON [Concomitant]
     Active Substance: ONDANSETRON
  4. PEPCID [ALUMINIUM HYDROXIDE GEL, DRIED;MAGNESIUM CARBONATE] [Concomitant]
     Active Substance: ALUMINUM HYDROXIDE\MAGNESIUM CARBONATE
  5. PROGRAF [Concomitant]
     Active Substance: TACROLIMUS
  6. FLUCONAZOLE. [Concomitant]
     Active Substance: FLUCONAZOLE
  7. CYSTARAN [Suspect]
     Active Substance: CYSTEAMINE HYDROCHLORIDE
     Indication: CYSTINOSIS
     Dosage: 1 DROP, QH
     Route: 047
     Dates: start: 20160617
  8. CARVEDIOL [Concomitant]
     Active Substance: CARVEDILOL
  9. LEVOTHYROXINE. [Concomitant]
     Active Substance: LEVOTHYROXINE
  10. IMODIUM [Concomitant]
     Active Substance: LOPERAMIDE HYDROCHLORIDE
  11. CLARITIN [Concomitant]
     Active Substance: LORATADINE
  12. PREDNISONE. [Concomitant]
     Active Substance: PREDNISONE

REACTIONS (1)
  - Eye irritation [Not Recovered/Not Resolved]

NARRATIVE: CASE EVENT DATE: 20190613
